FAERS Safety Report 9334949 (Version 1)
Quarter: 2013Q2

REPORT INFORMATION
  Report Type: Spontaneous
  Country: US (occurrence: US)
  Receive Date: 20130606
  Receipt Date: 20130606
  Transmission Date: 20140414
  Serious: Yes (Other)
  Sender: FDA-Public Use
  Company Number: US-SANOFI-AVENTIS-2013SA055229

PATIENT
  Age: 83 Year
  Sex: Female

DRUGS (1)
  1. LANTUS [Suspect]
     Dosage: FREQUENCY- ONCE  DAILY DOSE:15 UNIT(S)
     Route: 051

REACTIONS (3)
  - Deafness unilateral [Unknown]
  - Hearing impaired [Unknown]
  - Blood glucose decreased [Unknown]
